FAERS Safety Report 10008610 (Version 1)
Quarter: 2014Q1

REPORT INFORMATION
  Report Type: Spontaneous
  Country: US (occurrence: US)
  Receive Date: 20140312
  Receipt Date: 20140312
  Transmission Date: 20141002
  Serious: No
  Sender: FDA-Public Use
  Company Number: US-INCYTE CORPORATION-2012IN000313

PATIENT
  Age: 71 Year
  Sex: Male

DRUGS (5)
  1. JAKAFI [Suspect]
     Indication: MYELOFIBROSIS
     Dosage: 15 MG, BID
     Route: 048
     Dates: start: 20120214
  2. PROPANOLOL [Concomitant]
     Dosage: 20 MG, BID
  3. ULORIC [Concomitant]
     Dosage: 20 MG, QD
  4. GLYBURIDE [Concomitant]
     Dosage: 25 MG, QD
  5. AUGMENTIN [Concomitant]
     Indication: UPPER RESPIRATORY TRACT INFECTION
     Dosage: 875/125 MG, BID

REACTIONS (1)
  - Upper respiratory tract infection [Not Recovered/Not Resolved]
